FAERS Safety Report 12549439 (Version 1)
Quarter: 2016Q3

REPORT INFORMATION
  Report Type: Report from Study
  Country: JP (occurrence: JP)
  Receive Date: 20160712
  Receipt Date: 20160712
  Transmission Date: 20161109
  Serious: Yes (Hospitalization, Other)
  Sender: FDA-Public Use
  Company Number: JP-SA-2016SA125017

PATIENT
  Age: 67 Year
  Sex: Female
  Weight: 61.8 kg

DRUGS (8)
  1. PLAVIX [Suspect]
     Active Substance: CLOPIDOGREL BISULFATE
     Indication: ARTERIAL OCCLUSIVE DISEASE
     Route: 065
     Dates: start: 20141021, end: 20150311
  2. CARBOCAINE [Concomitant]
     Active Substance: MEPIVACAINE HYDROCHLORIDE
     Dates: start: 20150213, end: 20150213
  3. CRESTOR [Concomitant]
     Active Substance: ROSUVASTATIN CALCIUM
  4. JANUVIA [Concomitant]
     Active Substance: SITAGLIPTIN PHOSPHATE
  5. METGLUCO [Concomitant]
     Active Substance: METFORMIN HYDROCHLORIDE
  6. MAGLAX [Concomitant]
     Active Substance: MAGNESIUM OXIDE
     Dates: start: 20150115
  7. MICARDIS [Concomitant]
     Active Substance: TELMISARTAN
  8. PURSENNID [Concomitant]
     Active Substance: SENNOSIDES A AND B
     Dates: start: 20141022

REACTIONS (3)
  - Haemorrhage [Recovered/Resolved]
  - Breast neoplasm [Recovering/Resolving]
  - Breast cancer [Recovering/Resolving]

NARRATIVE: CASE EVENT DATE: 20141118
